FAERS Safety Report 11969067 (Version 1)
Quarter: 2016Q1

REPORT INFORMATION
  Report Type: Report from Study
  Country: US (occurrence: US)
  Receive Date: 20160128
  Receipt Date: 20160128
  Transmission Date: 20160526
  Serious: Yes (Other)
  Sender: FDA-Public Use
  Company Number: PHEH2015US010860

PATIENT
  Age: 72 Year
  Sex: Male

DRUGS (1)
  1. EXELON PATCH [Suspect]
     Active Substance: RIVASTIGMINE
     Indication: DEMENTIA WITH LEWY BODIES
     Dosage: UNK, QD
     Route: 062
     Dates: start: 201501, end: 201506

REACTIONS (3)
  - Application site dermatitis [Recovered/Resolved]
  - Skin lesion [Unknown]
  - Scar [Unknown]

NARRATIVE: CASE EVENT DATE: 20150504
